FAERS Safety Report 4592335-7 (Version None)
Quarter: 2005Q1

REPORT INFORMATION
  Report Type: 
  Country: None (occurrence: None)
  Receive Date: 20050228
  Receipt Date: 20041210
  Transmission Date: 20050727
  Serious: No
  Sender: FDA-Public Use
  Company Number: US-BRISTOL-MYERS SQUIBB COMPANY-12791711

PATIENT
  Age: 46 Year
  Sex: Female
  Weight: 101 kg

DRUGS (6)
  1. ABILIFY [Suspect]
     Indication: SCHIZOAFFECTIVE DISORDER
     Dates: start: 20040718
  2. GLUCOPHAGE [Concomitant]
  3. INSULIN [Concomitant]
  4. FLAXSEED OIL [Concomitant]
  5. ASPIRIN [Concomitant]
  6. CALCIUM + VITAMIN D [Concomitant]

REACTIONS (7)
  - CHILLS [None]
  - FEELING HOT [None]
  - FEELING JITTERY [None]
  - NERVOUSNESS [None]
  - ORAL DISCOMFORT [None]
  - SENSORY DISTURBANCE [None]
  - TREMOR [None]
